FAERS Safety Report 15540327 (Version 3)
Quarter: 2018Q4

REPORT INFORMATION
  Report Type: Spontaneous
  Country: US (occurrence: US)
  Receive Date: 20181023
  Receipt Date: 20181108
  Transmission Date: 20190205
  Serious: No
  Sender: FDA-Public Use
  Company Number: US-PFIZER INC-2016167124

PATIENT
  Age: 57 Year
  Sex: Female

DRUGS (15)
  1. LYRICA [Suspect]
     Active Substance: PREGABALIN
     Dosage: 150 MG, AS NEEDED (TAKE 1 TABLET THREE TIMES DAILY AS NEEDED)
     Route: 048
  2. METFORMIN HCL [Concomitant]
     Active Substance: METFORMIN HYDROCHLORIDE
     Dosage: UNK, 2X/DAY
  3. ASPIRIN 81 [Concomitant]
     Active Substance: ASPIRIN
     Dosage: 81 MG, DAILY (TAKE 1 TAB DAILY)
  4. SERTRALINE [Concomitant]
     Active Substance: SERTRALINE HYDROCHLORIDE
     Dosage: 20 MG, UNK
  5. LYRICA [Suspect]
     Active Substance: PREGABALIN
     Dosage: 150 MG, THREE TIMES DAILY (TAKE 1 CAPSULE THREE TIMES DAILY)
     Route: 048
  6. MORPHINE [Concomitant]
     Active Substance: MORPHINE
     Dosage: 15 MG, UNK
  7. ZOLOFT [Concomitant]
     Active Substance: SERTRALINE HYDROCHLORIDE
     Dosage: 150 MG, 1X/DAY (TAKE 1.5 TABS AT BEDTIME)
  8. HYDROCODONE BITARTRATE AND ACETAMINOPHEN [Concomitant]
     Active Substance: ACETAMINOPHEN\HYDROCODONE BITARTRATE
     Dosage: UNK (HYDROCODONE-10MG, PARACETAMOL-325MG)
  9. VITAMIN D3 [Concomitant]
     Active Substance: CHOLECALCIFEROL
     Dosage: 2000 IU, 1X/DAY
  10. LEVOTHYROXINE SODIUM. [Concomitant]
     Active Substance: LEVOTHYROXINE SODIUM
     Dosage: 50 UG, DAILY (TAKE 1 TAB DAILY)
  11. SIMVASTATIN. [Concomitant]
     Active Substance: SIMVASTATIN
     Dosage: 20 MG, 1X/DAY (1 TAB AT BEDTIME)
  12. RIZATRIPTAN. [Concomitant]
     Active Substance: RIZATRIPTAN
     Dosage: 10 MG, AS NEEDED (1 TAB EVERY 2 HRS AS NEEDED)
  13. TIZANIDINE HCL [Concomitant]
     Active Substance: TIZANIDINE HYDROCHLORIDE
     Dosage: 2 MG, UNK(TAKE 1 TAB IN THE MORNING, 1 TAB AT NOON AND 1-2 TABS-AT BEDTIME)
  14. LIDOCAINE. [Concomitant]
     Active Substance: LIDOCAINE
     Dosage: UNK, 4X/DAY (APPLY TO THE AFFECTED AREA FOUR TIMES DAILY)
  15. MORPHINE [Concomitant]
     Active Substance: MORPHINE
     Dosage: 100 MG, UNK

REACTIONS (4)
  - Pain [Unknown]
  - Withdrawal syndrome [Unknown]
  - Influenza [Unknown]
  - Product use issue [Unknown]
